FAERS Safety Report 21089501 (Version 2)
Quarter: 2022Q3

REPORT INFORMATION
  Report Type: Spontaneous
  Country: CN (occurrence: CN)
  Receive Date: 20220715
  Receipt Date: 20220827
  Transmission Date: 20221027
  Serious: Yes (Hospitalization, Other)
  Sender: FDA-Public Use
  Company Number: CN-MLMSERVICE-20220630-3645510-1

PATIENT
  Age: 40 Year
  Sex: Male
  Weight: 240 kg

DRUGS (3)
  1. VANCOMYCIN [Suspect]
     Active Substance: VANCOMYCIN
     Indication: Acinetobacter infection
     Dosage: OVER 60 MIN MAINTENANCE DOSE
     Dates: start: 202011, end: 202012
  2. TIGECYCLINE [Concomitant]
     Active Substance: TIGECYCLINE
     Indication: Evidence based treatment
     Dates: start: 202011
  3. VANCOMYCIN [Suspect]
     Active Substance: VANCOMYCIN
     Indication: Staphylococcal infection
     Dosage: LOADING DOSE OVER 2 H
     Dates: start: 202011, end: 202011

REACTIONS (1)
  - Drug level increased [Unknown]
